FAERS Safety Report 8617539-5 (Version None)
Quarter: 2012Q3

REPORT INFORMATION
  Report Type: 
  Country: None (occurrence: None)
  Receive Date: 20120824
  Receipt Date: 20120220
  Transmission Date: 20120928
  Serious: No
  Sender: FDA-Public Use
  Company Number: US-ASTRAZENECA-2011SE68591

PATIENT
  Age: 39 Year
  Sex: Male

DRUGS (3)
  1. SYMBICORT [Suspect]
     Route: 055
  2. NEXIUM [Suspect]
     Route: 048
  3. PRILOSEC [Suspect]
     Route: 048

REACTIONS (5)
  - DRUG EFFECT DECREASED [None]
  - DYSPNOEA [None]
  - DYSPEPSIA [None]
  - COUGH [None]
  - DRUG DOSE OMISSION [None]
